FAERS Safety Report 7421323-8 (Version None)
Quarter: 2011Q2

REPORT INFORMATION
  Report Type: 
  Country: None (occurrence: None)
  Receive Date: 20110418
  Receipt Date: 20110407
  Transmission Date: 20111010
  Serious: Yes (Hospitalization)
  Sender: FDA-Public Use
  Company Number: US-ASTRAZENECA-2011SE15304

PATIENT
  Age: 58 Year
  Sex: Female

DRUGS (11)
  1. PROZAC [Concomitant]
  2. 20 OTHER MEDICATIONS [Concomitant]
  3. POTASSIUM [Concomitant]
  4. OXYCODONE [Concomitant]
  5. TOPROL-XL [Suspect]
     Route: 048
  6. LANTUS [Concomitant]
  7. WATER PILL [Concomitant]
  8. UNSPECIFIED SUSPECT DRUG [Suspect]
  9. FUROSEMIDE [Concomitant]
  10. LIDOCAINE [Concomitant]
  11. VARIOUS VITAMINS [Concomitant]

REACTIONS (15)
  - DRUG INEFFECTIVE [None]
  - INTERVERTEBRAL DISC PROTRUSION [None]
  - MENISCUS LESION [None]
  - PAIN [None]
  - WEIGHT DECREASED [None]
  - CYST [None]
  - BACK DISORDER [None]
  - NERVE INJURY [None]
  - FIBROMYALGIA [None]
  - MENTAL DISORDER [None]
  - PLEURITIC PAIN [None]
  - ARTHRITIS [None]
  - HYPERPHAGIA [None]
  - DIABETES MELLITUS INADEQUATE CONTROL [None]
  - BACK PAIN [None]
